FAERS Safety Report 5386621-0 (Version None)
Quarter: 2007Q3

REPORT INFORMATION
  Report Type: 
  Country: None (occurrence: None)
  Receive Date: 20070713
  Receipt Date: 20070704
  Transmission Date: 20080115
  Serious: Yes (Death, Life-Threatening, Hospitalization)
  Sender: FDA-Public Use
  Company Number: DK-ELI_LILLY_AND_COMPANY-DK200707000908

PATIENT
  Age: 69 Year
  Sex: Male

DRUGS (7)
  1. TERIPARATIDE [Suspect]
     Indication: OSTEOPOROSIS
     Dosage: 20 UG, DAILY (1/D)
     Route: 058
     Dates: start: 20060911, end: 20061130
  2. ELTROXIN [Concomitant]
     Dosage: 100 UG, DAILY (1/D)
     Route: 048
  3. HYDROKORTISON [Concomitant]
     Dosage: 20 MG, 2/D
     Route: 048
  4. AZATHIOPRINE SODIUM [Concomitant]
     Dosage: 50 MG, DAILY (1/D)
     Route: 048
  5. EFFEXOR [Concomitant]
     Dosage: 75 MG, DAILY (1/D)
     Route: 048
  6. OXYCONTIN [Concomitant]
     Dosage: 20 MG, 2/D
     Route: 048
  7. ACETAMINOPHEN [Concomitant]
     Dosage: 500 MG,
     Route: 048

REACTIONS (2)
  - CARDIAC ARREST [None]
  - PSEUDARTHROSIS [None]
